FAERS Safety Report 5027310-1 (Version None)
Quarter: 2006Q2

REPORT INFORMATION
  Report Type: 
  Country: None (occurrence: None)
  Receive Date: 20060612
  Receipt Date: 20060602
  Transmission Date: 20061013
  Serious: Yes (Hospitalization)
  Sender: FDA-Public Use
  Company Number: CFX20060008

PATIENT
  Age: 55 Year
  Sex: Female
  Weight: 66.2252 kg

DRUGS (3)
  1. CIPROFLOXACIN [Suspect]
     Indication: SCRATCH
     Dosage: 500MG   BID   PO
     Route: 048
     Dates: start: 20051101, end: 20051113
  2. NITROGYLCERIN SPRAY [Concomitant]
  3. ASPIRIN [Concomitant]

REACTIONS (26)
  - ABDOMINAL PAIN UPPER [None]
  - ABSCESS INTESTINAL [None]
  - ANAL INFLAMMATION [None]
  - BLOOD PRESSURE INCREASED [None]
  - BODY TEMPERATURE INCREASED [None]
  - BREAST PAIN [None]
  - DIVERTICULITIS [None]
  - DIZZINESS [None]
  - DRY MOUTH [None]
  - FLUOROSIS [None]
  - GENITAL TRACT INFLAMMATION [None]
  - GROIN INFECTION [None]
  - INSOMNIA [None]
  - MIGRAINE WITH AURA [None]
  - MUSCULOSKELETAL STIFFNESS [None]
  - PAIN [None]
  - PAIN IN EXTREMITY [None]
  - PURPURA [None]
  - RASH PRURITIC [None]
  - SKIN HAEMORRHAGE [None]
  - SWEAT GLAND INFECTION [None]
  - THERMAL BURN [None]
  - VISION BLURRED [None]
  - VULVOVAGINAL MYCOTIC INFECTION [None]
  - WEIGHT DECREASED [None]
  - WHITE BLOOD CELL COUNT INCREASED [None]
